FAERS Safety Report 4516222-5 (Version None)
Quarter: 2004Q4

REPORT INFORMATION
  Report Type: 
  Country: None (occurrence: None)
  Receive Date: 20041129
  Receipt Date: 20041123
  Transmission Date: 20050328
  Serious: Yes (Other)
  Sender: FDA-Public Use
  Company Number: US-JNJFOC-20041003975

PATIENT
  Age: 58 Year
  Sex: Male

DRUGS (2)
  1. IMODIUM ADVANCED [Suspect]
     Indication: DIARRHOEA
     Dosage: 4 DOSES (S), 1 IN 1 DAY, ORAL
     Route: 048
     Dates: start: 20040901, end: 20041006
  2. NEXIUM [Concomitant]

REACTIONS (5)
  - ABDOMINAL DISTENSION [None]
  - CONSTIPATION [None]
  - DIARRHOEA [None]
  - DISEASE RECURRENCE [None]
  - DRUG ABUSER [None]
